FAERS Safety Report 13561094 (Version 1)
Quarter: 2017Q2

REPORT INFORMATION
  Report Type: Spontaneous
  Country: US (occurrence: US)
  Receive Date: 20170518
  Receipt Date: 20170518
  Transmission Date: 20170830
  Serious: No
  Sender: FDA-Public Use
  Company Number: US-ROCHE-777787

PATIENT
  Sex: Female
  Weight: 75 kg

DRUGS (4)
  1. ANTACID NOS [Concomitant]
     Indication: GASTROOESOPHAGEAL REFLUX DISEASE
     Route: 065
  2. ALEVE [Suspect]
     Active Substance: NAPROXEN SODIUM
     Indication: ARTHRITIS
     Dosage: DOSE REPORTED AS BOTTLE COUNT 40CT.DRUG REPORTED AS ALEVE GELCAP.
     Route: 048
  3. ANTIHYPERTENSIVE AGENTS [Concomitant]
     Indication: HYPERTENSION
     Route: 065
  4. PERCOCET [Concomitant]
     Active Substance: ACETAMINOPHEN\OXYCODONE HYDROCHLORIDE
     Route: 065

REACTIONS (1)
  - Dyspnoea [Unknown]
